FAERS Safety Report 6344009-X (Version None)
Quarter: 2009Q3

REPORT INFORMATION
  Report Type: 
  Country: None (occurrence: None)
  Receive Date: 20090908
  Receipt Date: 20090826
  Transmission Date: 20100115
  Serious: Yes (Hospitalization)
  Sender: FDA-Public Use
  Company Number: US-PFIZER INC-2009262104

PATIENT
  Sex: Male
  Weight: 62.585 kg

DRUGS (3)
  1. LIPITOR [Suspect]
     Indication: BLOOD CHOLESTEROL INCREASED
     Dosage: 40 MG, 1X/DAY
     Route: 048
     Dates: start: 20080101, end: 20090801
  2. MICARDIS [Concomitant]
     Indication: HYPERTENSION
     Route: 048
  3. ACTOPLUS MET [Concomitant]
     Indication: DIABETES MELLITUS
     Dosage: 15/500MG TWO TIMES A DAY
     Route: 048

REACTIONS (3)
  - FATIGUE [None]
  - HEPATIC ENZYME INCREASED [None]
  - HEPATOMEGALY [None]
